FAERS Safety Report 20309523 (Version 1)
Quarter: 2022Q1

REPORT INFORMATION
  Report Type: Spontaneous
  Country: NL (occurrence: None)
  Receive Date: 20220107
  Receipt Date: 20220107
  Transmission Date: 20220424
  Serious: Yes (Other)
  Sender: FDA-Public Use
  Company Number: None

PATIENT
  Sex: Female
  Weight: 65 kg

DRUGS (3)
  1. RITUXIMAB [Suspect]
     Active Substance: RITUXIMAB
     Indication: Scleritis
     Dosage: INFUUS 1000MG / 250ML,
     Route: 065
     Dates: start: 20210727, end: 20210810
  2. PREDNISOLONE [Concomitant]
     Active Substance: PREDNISOLONE
     Dosage: INFUUS 100MG/50ML
  3. ISONIAZID [Concomitant]
     Active Substance: ISONIAZID

REACTIONS (3)
  - Periorbital cellulitis [Recovered/Resolved]
  - Retinal detachment [Recovered/Resolved]
  - Choroidal detachment [Recovered/Resolved]
